FAERS Safety Report 22387016 (Version 1)
Quarter: 2023Q2

REPORT INFORMATION
  Report Type: Spontaneous
  Country: US (occurrence: US)
  Receive Date: 20230531
  Receipt Date: 20230531
  Transmission Date: 20230722
  Serious: Yes (Other)
  Sender: FDA-Public Use
  Company Number: US-STRIDES ARCOLAB LIMITED-2023SP007050

PATIENT
  Age: 29 Year
  Sex: Female

DRUGS (8)
  1. QUININE [Suspect]
     Active Substance: QUININE
     Indication: Plasmodium falciparum infection
     Dosage: 648 MILLIGRAM, EVERY 8 HOURS FOR 24 HOURS (TOTAL 3 DOSES)
     Route: 065
  2. PREDNISOLONE [Suspect]
     Active Substance: PREDNISOLONE
     Indication: Autoimmune haemolytic anaemia
     Dosage: 1 MILLIGRAM/KILOGRAM PER DAY
     Route: 065
  3. PREDNISOLONE [Suspect]
     Active Substance: PREDNISOLONE
     Dosage: 60 MILLIGRAM, UNKNOWN
     Route: 065
  4. ARTEMETHER\LUMEFANTRINE [Suspect]
     Active Substance: ARTEMETHER\LUMEFANTRINE
     Indication: Malaria
     Dosage: UNK
     Route: 065
  5. ARTESUNATE [Suspect]
     Active Substance: ARTESUNATE
     Indication: Plasmodium falciparum infection
     Dosage: 2.4 MILLIGRAM/KILOGRAM, EVERY 12 HRS
     Route: 042
  6. CLINDAMYCIN [Suspect]
     Active Substance: CLINDAMYCIN
     Indication: Plasmodium falciparum infection
     Dosage: 450 MILLIGRAM, EVERY 8 HOURS FOR 24 HOURS (TOTAL 3 DOSES)
     Route: 065
  7. CLINDAMYCIN [Suspect]
     Active Substance: CLINDAMYCIN
     Dosage: UNK; DISCHARGED WITH CLINDAMYCIN
     Route: 065
  8. METHYLPREDNISOLONE [Suspect]
     Active Substance: METHYLPREDNISOLONE
     Indication: Autoimmune haemolytic anaemia
     Dosage: 500 MILLIGRAM PER DAY
     Route: 042

REACTIONS (2)
  - Malaria [Recovered/Resolved]
  - Maternal exposure during pregnancy [Unknown]
